FAERS Safety Report 7238412-3 (Version None)
Quarter: 2011Q1

REPORT INFORMATION
  Report Type: 
  Country: None (occurrence: None)
  Receive Date: 20110121
  Receipt Date: 20110113
  Transmission Date: 20110831
  Serious: Yes (Death)
  Sender: FDA-Public Use
  Company Number: JP-MERCK-1101USA01657

PATIENT
  Age: 56 Year
  Sex: Male

DRUGS (6)
  1. ONCOVIN [Concomitant]
     Route: 042
  2. ENDOXAN [Concomitant]
     Route: 065
  3. DOXORUBICIN HYDROCHLORIDE [Concomitant]
     Route: 042
  4. DECADRON [Suspect]
     Route: 048
  5. ETOPOSIDE [Concomitant]
     Route: 065
  6. CYTARABINE [Concomitant]
     Route: 065

REACTIONS (2)
  - PNEUMONIA [None]
  - BONE MARROW DISORDER [None]
